FAERS Safety Report 5300352-4 (Version None)
Quarter: 2007Q2

REPORT INFORMATION
  Report Type: 
  Country: None (occurrence: None)
  Receive Date: 20070411
  Receipt Date: 20070330
  Transmission Date: 20071010
  Serious: Yes (Death)
  Sender: FDA-Public Use
  Company Number: 2007JP001105

PATIENT
  Age: 72 Year
  Sex: Male
  Weight: 60 kg

DRUGS (5)
  1. PROGRAF [Suspect]
     Indication: RHEUMATOID ARTHRITIS
     Dosage: 2 MG, UID/QD, ORAL
     Route: 048
     Dates: start: 20061101, end: 20070306
  2. AZULFIDINE EN TABLET [Concomitant]
  3. PREDNISOLONE [Concomitant]
  4. OSTELUC (ETODOLAC) TABLET [Concomitant]
  5. RANITAC (RANITIDINE HYDROCHLORIDE) TABLET [Concomitant]

REACTIONS (3)
  - CONDITION AGGRAVATED [None]
  - DYSPHAGIA [None]
  - INTERSTITIAL LUNG DISEASE [None]
